FAERS Safety Report 14944895 (Version 1)
Quarter: 2018Q2

REPORT INFORMATION
  Report Type: Spontaneous
  Country: FR (occurrence: FR)
  Receive Date: 20180529
  Receipt Date: 20180529
  Transmission Date: 20180711
  Serious: Yes (Hospitalization, Congenital Anomaly)
  Sender: FDA-Public Use
  Company Number: FR-TEVA-2018-FR-898873

PATIENT
  Age: 66 Year
  Sex: Female
  Weight: 45 kg

DRUGS (4)
  1. ALKERAN [Suspect]
     Active Substance: MELPHALAN
     Indication: HIGH GRADE B-CELL LYMPHOMA BURKITT-LIKE LYMPHOMA
     Dosage: 201.6 MILLIGRAM DAILY;
     Route: 042
     Dates: start: 20160829, end: 20160829
  2. BICNU [Suspect]
     Active Substance: CARMUSTINE
     Indication: HIGH GRADE B-CELL LYMPHOMA BURKITT-LIKE LYMPHOMA
     Dosage: 432 MILLIGRAM DAILY;
     Route: 042
     Dates: start: 20160824, end: 20160824
  3. CYTARABINE EG [Suspect]
     Active Substance: CYTARABINE
     Indication: HIGH GRADE B-CELL LYMPHOMA BURKITT-LIKE LYMPHOMA
     Dosage: 576 MILLIGRAM DAILY;
     Route: 042
     Dates: start: 20160825, end: 20160828
  4. ETOPOSIDE. [Suspect]
     Active Substance: ETOPOSIDE
     Indication: HIGH GRADE B-CELL LYMPHOMA BURKITT-LIKE LYMPHOMA
     Dosage: 576 MILLIGRAM DAILY;
     Route: 042
     Dates: start: 20160825, end: 20160828

REACTIONS (5)
  - Diarrhoea [Recovered/Resolved]
  - Mucosal inflammation [Recovered/Resolved]
  - Vomiting [Recovered/Resolved]
  - Aplasia [Recovered/Resolved]
  - Febrile neutropenia [Recovered/Resolved]

NARRATIVE: CASE EVENT DATE: 20160831
